FAERS Safety Report 8796486 (Version 2)
Quarter: 2012Q4

REPORT INFORMATION
  Report Type: 
  Country: US (occurrence: US)
  Receive Date: 20120919
  Receipt Date: 20121108
  Transmission Date: 20130627
  Serious: No
  Sender: FDA-Public Use
  Company Number: US-ASTRAZENECA-2012SE41690

PATIENT
  Age: 77 Year
  Sex: Female

DRUGS (3)
  1. PULMICORT RESPULES [Suspect]
     Dosage: ONE VIAL VIA NEBULIZER TWICE DAILY
     Route: 055
  2. PULMICORT RESPULES [Suspect]
     Dosage: ONE VIAL VIA NEBULIZER FOUR TIMES A DAY OR TWO VIALS TWICE A DAY
     Route: 055
  3. PREDNISONE [Concomitant]

REACTIONS (4)
  - Feeling abnormal [Unknown]
  - Dysphonia [Unknown]
  - Drug prescribing error [Unknown]
  - Off label use [Unknown]
